FAERS Safety Report 5485698-1 (Version None)
Quarter: 2007Q4

REPORT INFORMATION
  Report Type: 
  Country: None (occurrence: None)
  Receive Date: 20071015
  Receipt Date: 20071004
  Transmission Date: 20080405
  Serious: Yes (Life-Threatening)
  Sender: FDA-Public Use
  Company Number: JP-JNJFOC-20070903195

PATIENT
  Sex: Male

DRUGS (9)
  1. LEVOFLOXACIN [Suspect]
     Indication: UPPER RESPIRATORY TRACT INFLAMMATION
     Route: 048
  2. PAXIL [Suspect]
     Indication: DRUG USE FOR UNKNOWN INDICATION
     Route: 048
  3. ASPIRIN [Concomitant]
     Route: 065
  4. TAKEPRON OD [Concomitant]
     Route: 048
  5. PLETAL [Concomitant]
     Route: 048
  6. MUCODYNE [Concomitant]
     Route: 048
  7. NICHIASPIRIN [Concomitant]
     Route: 048
  8. SOLULACT [Concomitant]
     Route: 041
  9. INSULIN [Concomitant]
     Route: 065

REACTIONS (2)
  - DISSEMINATED INTRAVASCULAR COAGULATION [None]
  - RHABDOMYOLYSIS [None]
